FAERS Safety Report 7387554-0 (Version None)
Quarter: 2011Q1

REPORT INFORMATION
  Report Type: 
  Country: None (occurrence: None)
  Receive Date: 20110331
  Receipt Date: 20110317
  Transmission Date: 20110831
  Serious: Yes (Other)
  Sender: FDA-Public Use
  Company Number: FR-CEPHALON-2011000917

PATIENT
  Sex: Male

DRUGS (4)
  1. SOLUPRED [Concomitant]
  2. FENTANYL CITRATE [Suspect]
     Indication: CANCER PAIN
     Route: 002
     Dates: start: 20100501
  3. FENTANYL CITRATE [Suspect]
     Route: 002
  4. DURAGESIC-100 [Concomitant]
     Indication: CANCER PAIN
     Route: 062
     Dates: start: 20100501

REACTIONS (3)
  - INTENTIONAL DRUG MISUSE [None]
  - DRUG PRESCRIBING ERROR [None]
  - DRUG DEPENDENCE [None]
